FAERS Safety Report 13697238 (Version 1)
Quarter: 2017Q2

REPORT INFORMATION
  Report Type: Spontaneous
  Country: US (occurrence: US)
  Receive Date: 20170628
  Receipt Date: 20170628
  Transmission Date: 20170830
  Serious: No
  Sender: FDA-Public Use
  Company Number: US-BAYER-2017-114238

PATIENT
  Age: 60 Year
  Sex: Female
  Weight: 90.98 kg

DRUGS (3)
  1. PAIN STOPPER EXTRA [Suspect]
     Active Substance: ACETAMINOPHEN\ASPIRIN\CAFFEINE\SALICYLAMIDE
     Dosage: 2 DF, UNK (EVERY 4-5 HOURS)
     Route: 048
     Dates: end: 201706
  2. ALEVE [Suspect]
     Active Substance: NAPROXEN SODIUM
     Indication: ARTHRALGIA
     Dosage: 4 DF, BID(2 EVERY 12 HOURS)
     Route: 048
     Dates: end: 20170611
  3. LAXATIVE [Concomitant]
     Active Substance: UNSPECIFIED INGREDIENT

REACTIONS (2)
  - Drug ineffective [Unknown]
  - Constipation [Unknown]
